FAERS Safety Report 24997136 (Version 1)
Quarter: 2025Q1

REPORT INFORMATION
  Report Type: Spontaneous
  Country: US (occurrence: US)
  Receive Date: 20250221
  Receipt Date: 20250221
  Transmission Date: 20250408
  Serious: No
  Sender: Velzen Pharma
  Company Number: US-Velzen pharma pvt ltd-2171562

PATIENT

DRUGS (4)
  1. NIFEDIPINE [Suspect]
     Active Substance: NIFEDIPINE
     Indication: Scleroderma
  2. NIFEDIPINE [Suspect]
     Active Substance: NIFEDIPINE
     Indication: Raynaud^s phenomenon
  3. NIFEDIPINE [Suspect]
     Active Substance: NIFEDIPINE
     Indication: Systemic lupus erythematosus
  4. HYDROXYCHLOROQUINE SULFATE [Suspect]
     Active Substance: HYDROXYCHLOROQUINE SULFATE

REACTIONS (3)
  - Fatigue [Unknown]
  - Product use in unapproved indication [Unknown]
  - Bone pain [Unknown]
